FAERS Safety Report 7450876-9 (Version None)
Quarter: 2011Q2

REPORT INFORMATION
  Report Type: 
  Country: None (occurrence: None)
  Receive Date: 20110502
  Receipt Date: 20110425
  Transmission Date: 20111010
  Serious: Yes (Other)
  Sender: FDA-Public Use
  Company Number: GB-PFIZER INC-2011088666

PATIENT
  Age: 69 Year
  Sex: Male

DRUGS (8)
  1. SPIRONOLACTONE [Suspect]
     Dosage: 25 MG, 1X/DAY
     Dates: start: 20000601, end: 20020101
  2. ATORVASTATIN [Concomitant]
     Dosage: 10 MG, 1X/DAY
  3. ATENOLOL [Concomitant]
     Dosage: 50 MG, 1X/DAY
  4. LASIX [Concomitant]
     Dosage: 40 MG, 1X/DAY
  5. TRANDOLAPRIL [Concomitant]
     Dosage: 2 MG, 1X/DAY
  6. SULINDAC [Concomitant]
     Dosage: UNK
  7. LERCANIDIPINE [Concomitant]
     Dosage: 10 MG, 1X/DAY
  8. OMEPRAZOLE [Concomitant]
     Dosage: 20 MG, 1X/DAY

REACTIONS (2)
  - GLOMERULONEPHRITIS MEMBRANOUS [None]
  - GYNAECOMASTIA [None]
